FAERS Safety Report 8402993 (Version 2)
Quarter: 2014Q4

REPORT INFORMATION
  Report Type: Spontaneous
  Country: US (occurrence: US)
  Receive Date: 20120213
  Receipt Date: 20141105
  Transmission Date: 20150529
  Serious: Yes (Hospitalization, Other)
  Sender: FDA-Public Use
  Company Number: US-GLAXOSMITHKLINE-B0723202A

PATIENT
  Age: 53 Year
  Sex: Female
  Weight: 84 kg

DRUGS (1)
  1. AVANDIA [Suspect]
     Active Substance: ROSIGLITAZONE MALEATE
     Indication: DIABETES MELLITUS
     Dosage: 4 MG, UNK
     Route: 048
     Dates: start: 20000222, end: 20030707

REACTIONS (5)
  - Myocardial infarction [Unknown]
  - Coronary artery bypass [Unknown]
  - Coronary artery disease [Unknown]
  - Angina unstable [Not Recovered/Not Resolved]
  - Pulmonary oedema [Unknown]

NARRATIVE: CASE EVENT DATE: 200205
